FAERS Safety Report 17035503 (Version 1)
Quarter: 2019Q4

REPORT INFORMATION
  Report Type: Spontaneous
  Country: GB (occurrence: GB)
  Receive Date: 20191115
  Receipt Date: 20191115
  Transmission Date: 20200122
  Serious: Yes (Other)
  Sender: FDA-Public Use
  Company Number: GB-TEVA-2019-GB-1137461

PATIENT
  Age: 63 Year
  Sex: Female
  Weight: 74.83 kg

DRUGS (8)
  1. DOXAZOSIN MESYLATE. [Concomitant]
     Active Substance: DOXAZOSIN MESYLATE
  2. GLUCOSAMINE SULFATE [Concomitant]
     Active Substance: GLUCOSAMINE SULFATE
  3. ALLOPURINOL. [Concomitant]
     Active Substance: ALLOPURINOL
  4. ASCORBIC ACID. [Concomitant]
     Active Substance: ASCORBIC ACID
  5. LOPERAMIDE [Concomitant]
     Active Substance: LOPERAMIDE
  6. IRBESARTAN. [Concomitant]
     Active Substance: IRBESARTAN
  7. SIMVASTATIN. [Concomitant]
     Active Substance: SIMVASTATIN
  8. TRIMETHOPRIM. [Suspect]
     Active Substance: TRIMETHOPRIM
     Indication: URINARY TRACT INFECTION
     Dosage: 800 MG
     Route: 048
     Dates: start: 20180516, end: 20180518

REACTIONS (8)
  - Oral mucosal blistering [Recovering/Resolving]
  - Mouth swelling [Recovering/Resolving]
  - Pain [Not Recovered/Not Resolved]
  - Angular cheilitis [Recovering/Resolving]
  - Dyspepsia [Recovering/Resolving]
  - Headache [Recovering/Resolving]
  - Pruritus [Recovering/Resolving]
  - Rash [Recovering/Resolving]

NARRATIVE: CASE EVENT DATE: 20180518
